FAERS Safety Report 4292422-7 (Version None)
Quarter: 2004Q1

REPORT INFORMATION
  Report Type: 
  Country: None (occurrence: None)
  Receive Date: 20040126
  Receipt Date: 20031031
  Transmission Date: 20041129
  Serious: Yes (Other)
  Sender: FDA-Public Use
  Company Number: USA031050053

PATIENT
  Age: 58 Year
  Sex: Female

DRUGS (2)
  1. FORTEO [Suspect]
     Indication: OSTEOPOROSIS
     Dates: start: 20031029
  2. EVISTA [Suspect]
     Indication: OSTEOPOROSIS
     Dosage: 60 MG/DAY
     Dates: start: 20010101

REACTIONS (24)
  - BIOPSY BREAST [None]
  - BREAST MASS [None]
  - CHEST DISCOMFORT [None]
  - CHEST PAIN [None]
  - DISTURBANCE IN SOCIAL BEHAVIOUR [None]
  - DIZZINESS [None]
  - DRY MOUTH [None]
  - DYSPNOEA [None]
  - FEELING ABNORMAL [None]
  - HEADACHE [None]
  - IMPAIRED DRIVING ABILITY [None]
  - IMPLANT SITE REACTION [None]
  - INJECTION SITE ERYTHEMA [None]
  - INJECTION SITE HAEMORRHAGE [None]
  - INJECTION SITE PAIN [None]
  - INJECTION SITE REACTION [None]
  - INSOMNIA [None]
  - MIGRAINE [None]
  - MUSCLE CRAMP [None]
  - NECK MASS [None]
  - OEDEMA PERIPHERAL [None]
  - OOPHORECTOMY BILATERAL [None]
  - SWOLLEN TONGUE [None]
  - TONGUE DRY [None]
